FAERS Safety Report 15374513 (Version 1)
Quarter: 2018Q3

REPORT INFORMATION
  Report Type: Report from Study
  Country: None (occurrence: US)
  Receive Date: 20180912
  Receipt Date: 20180912
  Transmission Date: 20181010
  Serious: Yes (Hospitalization, Other)
  Sender: FDA-Public Use
  Company Number: US-ABBVIE-18K-163-2458218-00

PATIENT
  Age: 44 Year
  Sex: Female
  Weight: 86.71 kg

DRUGS (2)
  1. HUMIRA [Suspect]
     Active Substance: ADALIMUMAB
     Indication: PSORIASIS
     Route: 058
     Dates: start: 2017, end: 201807
  2. WARFARIN [Suspect]
     Active Substance: WARFARIN
     Indication: INTRACARDIAC THROMBUS
     Route: 065
     Dates: start: 20180725

REACTIONS (7)
  - Ejection fraction abnormal [Recovering/Resolving]
  - White blood cell count increased [Recovering/Resolving]
  - Coronary artery occlusion [Recovering/Resolving]
  - Asthenia [Recovering/Resolving]
  - Anxiety [Recovering/Resolving]
  - Contusion [Recovering/Resolving]
  - Myocardial infarction [Recovering/Resolving]

NARRATIVE: CASE EVENT DATE: 2018
